FAERS Safety Report 7150420-X (Version None)
Quarter: 2010Q4

REPORT INFORMATION
  Report Type: 
  Country: None (occurrence: None)
  Receive Date: 20101210
  Receipt Date: 20101129
  Transmission Date: 20110411
  Serious: Yes (Hospitalization, Disabling, Other)
  Sender: FDA-Public Use
  Company Number: PHHY2010AT77736

PATIENT
  Sex: Female
  Weight: 49 kg

DRUGS (2)
  1. ACLASTA [Suspect]
     Indication: OSTEOPOROSIS
     Dosage: UNK
     Dates: start: 20090420
  2. ACLASTA [Suspect]
     Dosage: 5 MG
     Dates: start: 20100420

REACTIONS (3)
  - ENTEROCOCCAL SEPSIS [None]
  - OSTEONECROSIS OF JAW [None]
  - PYREXIA [None]
